FAERS Safety Report 19114317 (Version 1)
Quarter: 2021Q2

REPORT INFORMATION
  Report Type: Spontaneous
  Country: US (occurrence: US)
  Receive Date: 20210409
  Receipt Date: 20210409
  Transmission Date: 20210717
  Serious: No
  Sender: FDA-Public Use
  Company Number: US-ALLERGAN-2106394US

PATIENT

DRUGS (3)
  1. IBUPROFEN. [Concomitant]
     Active Substance: IBUPROFEN
     Indication: EXPOSURE VIA BREAST MILK
     Dosage: 600 MG ONE TIME DOSE
     Route: 063
     Dates: start: 20210118, end: 20210118
  2. LILETTA [Suspect]
     Active Substance: LEVONORGESTREL
     Indication: EXPOSURE VIA BREAST MILK
     Dosage: 52 MG, SINGLE
     Route: 063
     Dates: start: 20210118, end: 20210118
  3. ESTRADIOL UNK [Suspect]
     Active Substance: ESTRADIOL
     Indication: EXPOSURE VIA BREAST MILK
     Route: 063

REACTIONS (1)
  - Maternal exposure during breast feeding [Unknown]
